FAERS Safety Report 5038675-9 (Version None)
Quarter: 2006Q2

REPORT INFORMATION
  Report Type: 
  Country: None (occurrence: None)
  Receive Date: 20060627
  Receipt Date: 20060627
  Transmission Date: 20061013
  Serious: No
  Sender: FDA-Public Use
  Company Number: None

PATIENT
  Age: 73 Year
  Sex: Female
  Weight: 44.4525 kg

DRUGS (1)
  1. LEVAQUIN [Suspect]
     Dates: start: 20060620, end: 20060623

REACTIONS (7)
  - DYSPHAGIA [None]
  - DYSSTASIA [None]
  - HEARING IMPAIRED [None]
  - ILL-DEFINED DISORDER [None]
  - MYALGIA [None]
  - SPEECH DISORDER [None]
  - URINARY TRACT INFECTION [None]
